FAERS Safety Report 5194544-5 (Version None)
Quarter: 2006Q4

REPORT INFORMATION
  Report Type: 
  Country: None (occurrence: None)
  Receive Date: 20061221
  Receipt Date: 20061207
  Transmission Date: 20070319
  Serious: Yes (Other)
  Sender: FDA-Public Use
  Company Number: NALCH-06-0603

PATIENT
  Sex: Male

DRUGS (7)
  1. NAROPIN [Suspect]
     Indication: NERVE BLOCK
     Dosage: SEE IMAGE
  2. NAROPIN [Suspect]
     Indication: POSTOPERATIVE ANALGESIA
     Dosage: SEE IMAGE
  3. NAROPIN [Suspect]
     Indication: PREMEDICATION
     Dosage: SEE IMAGE
  4. NAROPIN [Suspect]
     Indication: SPINAL ANAESTHESIA
     Dosage: SEE IMAGE
  5. MIDAZOLAM HCL [Concomitant]
  6. HYPERBARIC BUPIVACAINE [Concomitant]
  7. ACETAMINOPHEN [Concomitant]

REACTIONS (6)
  - AREFLEXIA [None]
  - MUSCULAR WEAKNESS [None]
  - NERVE BLOCK [None]
  - NERVE DEGENERATION [None]
  - POST PROCEDURAL COMPLICATION [None]
  - SENSORY DISTURBANCE [None]
